FAERS Safety Report 4590601-2 (Version None)
Quarter: 2005Q1

REPORT INFORMATION
  Report Type: 
  Country: None (occurrence: None)
  Receive Date: 20050224
  Receipt Date: 20050223
  Transmission Date: 20050727
  Serious: Yes (Other)
  Sender: FDA-Public Use
  Company Number: DE-GLAXOSMITHKLINE-D0045971A

PATIENT

DRUGS (1)
  1. REQUIP [Suspect]
     Route: 048

REACTIONS (1)
  - AORTIC VALVE INCOMPETENCE [None]
